FAERS Safety Report 20900376 (Version 1)
Quarter: 2022Q2

REPORT INFORMATION
  Report Type: Spontaneous
  Country: US (occurrence: None)
  Receive Date: 20220531
  Receipt Date: 20220531
  Transmission Date: 20220720
  Serious: Yes (Other)
  Sender: FDA-Public Use
  Company Number: None

PATIENT
  Age: 90 Year
  Weight: 78.75 kg

DRUGS (4)
  1. ABIRATERONE [Suspect]
     Active Substance: ABIRATERONE
     Indication: Prostate cancer
     Dosage: FREQUENCY : DAILY;?
     Route: 048
     Dates: start: 20220429
  2. DUTASTERIDE [Concomitant]
     Active Substance: DUTASTERIDE
     Dates: start: 20220428
  3. CLONIDINE [Concomitant]
     Active Substance: CLONIDINE
     Dates: start: 20220428
  4. LUPRON [Concomitant]
     Active Substance: LEUPROLIDE ACETATE
     Dates: start: 20220428

REACTIONS (1)
  - Product use complaint [None]

NARRATIVE: CASE EVENT DATE: 20220531
